FAERS Safety Report 22310914 (Version 1)
Quarter: 2023Q2

REPORT INFORMATION
  Report Type: Spontaneous
  Country: US (occurrence: None)
  Receive Date: 20230510
  Receipt Date: 20230510
  Transmission Date: 20230722
  Serious: No
  Sender: FDA-Public Use
  Company Number: None

PATIENT

DRUGS (1)
  1. ZOPICLONE [Suspect]
     Active Substance: ZOPICLONE

REACTIONS (3)
  - Wrong patient received product [None]
  - Wrong product administered [None]
  - Performance status decreased [None]
